FAERS Safety Report 14869676 (Version 1)
Quarter: 2018Q2

REPORT INFORMATION
  Report Type: Spontaneous
  Country: US (occurrence: US)
  Receive Date: 20180509
  Receipt Date: 20180509
  Transmission Date: 20180711
  Serious: No
  Sender: FDA-Public Use
  Company Number: US-ASTRAZENECA-2018SE45821

PATIENT
  Sex: Male

DRUGS (1)
  1. TUDORZA PRESSAIR [Suspect]
     Active Substance: ACLIDINIUM BROMIDE
     Dosage: 400MCG, ONE PUFF TWICE DAILY
     Route: 055

REACTIONS (5)
  - Blood cholesterol increased [Unknown]
  - Hypertension [Unknown]
  - Product quality issue [Unknown]
  - Chronic obstructive pulmonary disease [Unknown]
  - Intentional product misuse [Unknown]
